FAERS Safety Report 6526988-0 (Version None)
Quarter: 2010Q1

REPORT INFORMATION
  Report Type: 
  Country: None (occurrence: None)
  Receive Date: 20100105
  Receipt Date: 20091225
  Transmission Date: 20100710
  Serious: Yes (Death, Life-Threatening)
  Sender: FDA-Public Use
  Company Number: JP-PFIZER INC-2009315112

PATIENT
  Age: 74 Year
  Sex: Male
  Weight: 65.5 kg

DRUGS (15)
  1. SUNITINIB MALATE [Suspect]
     Indication: RENAL CELL CARCINOMA
     Dosage: 37.5 MG, 1X/DAY
     Route: 048
     Dates: start: 20091020, end: 20091030
  2. OXYCONTIN [Concomitant]
     Route: 048
     Dates: end: 20091028
  3. FENTANYL [Concomitant]
     Route: 062
     Dates: start: 20091028, end: 20091031
  4. MOBIC [Concomitant]
     Route: 048
     Dates: end: 20091028
  5. GASTER [Concomitant]
     Route: 048
     Dates: end: 20091028
  6. NOVAMIN [Concomitant]
     Route: 048
     Dates: end: 20091028
  7. OXYNORM [Concomitant]
     Route: 048
     Dates: end: 20091028
  8. MORPHINE HYDROCHLORIDE [Concomitant]
     Route: 048
     Dates: start: 20091029, end: 20091029
  9. PURSENNID [Concomitant]
     Route: 048
     Dates: end: 20091028
  10. NU LOTAN [Concomitant]
     Route: 048
     Dates: end: 20091028
  11. NIFEDIPINE [Concomitant]
     Route: 048
     Dates: end: 20091029
  12. VOGLIBOSE [Concomitant]
     Route: 048
     Dates: end: 20091027
  13. METFORMIN HCL [Concomitant]
     Dates: end: 20091028
  14. ACTOS [Concomitant]
     Dates: end: 20091028
  15. GASMOTIN [Concomitant]
     Dates: start: 20091029, end: 20091028

REACTIONS (3)
  - DISEASE PROGRESSION [None]
  - RENAL CELL CARCINOMA [None]
  - RENAL IMPAIRMENT [None]
